FAERS Safety Report 9197400 (Version 1)
Quarter: 2013Q1

REPORT INFORMATION
  Report Type: Spontaneous
  Country: BR (occurrence: BR)
  Receive Date: 20130328
  Receipt Date: 20130328
  Transmission Date: 20140127
  Serious: Yes (Other)
  Sender: FDA-Public Use
  Company Number: BR-GLAXOSMITHKLINE-A1017706A

PATIENT
  Age: 29 Year
  Sex: Female

DRUGS (2)
  1. AVAMYS [Suspect]
     Indication: RHINITIS
     Dosage: 2SPR TWICE PER DAY
     Route: 045
     Dates: start: 20121120
  2. ELANI [Concomitant]
     Indication: PRODUCT USED FOR UNKNOWN INDICATION
     Dosage: 1TAB PER DAY
     Dates: start: 2011

REACTIONS (1)
  - Vaginal haemorrhage [Not Recovered/Not Resolved]
